FAERS Safety Report 15010974 (Version 1)
Quarter: 2018Q2

REPORT INFORMATION
  Report Type: Spontaneous
  Country: US (occurrence: US)
  Receive Date: 20180614
  Receipt Date: 20180614
  Transmission Date: 20180711
  Serious: No
  Sender: FDA-Public Use
  Company Number: US-CELGENEUS-USA-20180602957

PATIENT
  Sex: Male

DRUGS (1)
  1. OTEZLA [Suspect]
     Active Substance: APREMILAST
     Indication: PSORIASIS
     Dosage: 60 MILLIGRAM
     Route: 048
     Dates: start: 201712

REACTIONS (6)
  - Vomiting [Unknown]
  - Feeling abnormal [Unknown]
  - Nausea [Unknown]
  - Lethargy [Unknown]
  - Middle insomnia [Unknown]
  - Fatigue [Unknown]
